FAERS Safety Report 7716501-4 (Version None)
Quarter: 2011Q3

REPORT INFORMATION
  Report Type: 
  Country: None (occurrence: None)
  Receive Date: 20110829
  Receipt Date: 20110819
  Transmission Date: 20111222
  Serious: Yes (Other)
  Sender: FDA-Public Use
  Company Number: US-BAYER-201040951NA

PATIENT
  Sex: Female
  Weight: 61 kg

DRUGS (9)
  1. YAZ [Suspect]
     Indication: ORAL CONTRACEPTION
     Route: 048
     Dates: start: 20090801, end: 20091101
  2. CIPROFLOXACIN [Concomitant]
  3. YASMIN [Suspect]
     Indication: ORAL CONTRACEPTION
     Route: 048
     Dates: start: 20080101, end: 20080701
  4. PREDNISONE [Concomitant]
     Dosage: 10 MG, TID
  5. PRENATAL TABLETS [Concomitant]
  6. LODRANE 24 [Concomitant]
  7. HYDROMET SYRUP [Concomitant]
  8. DROSPIRENONE AND ETHINYL ESTRADIOL [Suspect]
     Indication: ORAL CONTRACEPTION
     Dosage: UNK
     Route: 048
     Dates: start: 20080701, end: 20081001
  9. PREVACID [Concomitant]
     Indication: ABDOMINAL PAIN UPPER

REACTIONS (4)
  - PANCREATITIS [None]
  - GALLBLADDER DISORDER [None]
  - CHOLELITHIASIS [None]
  - PAIN [None]
